FAERS Safety Report 16784645 (Version 1)
Quarter: 2019Q3

REPORT INFORMATION
  Report Type: Spontaneous
  Country: FR (occurrence: FR)
  Receive Date: 20190909
  Receipt Date: 20190909
  Transmission Date: 20191005
  Serious: Yes (Hospitalization)
  Sender: FDA-Public Use
  Company Number: FR-SUN PHARMACEUTICAL INDUSTRIES LTD-2019RR-219784

PATIENT
  Age: 89 Year
  Sex: Male

DRUGS (3)
  1. ACIDE CLAVULANIQUE [Concomitant]
     Active Substance: CLAVULANIC ACID
     Indication: PRODUCT USED FOR UNKNOWN INDICATION
     Dosage: 3 GRAM, DAILY
     Route: 048
     Dates: start: 20190812
  2. AMOXICILLINE [Concomitant]
     Active Substance: AMOXICILLIN
     Indication: PRODUCT USED FOR UNKNOWN INDICATION
     Dosage: 2 GRAM, DAILY
     Route: 065
     Dates: start: 20190809
  3. ALLOPURINOL. [Suspect]
     Active Substance: ALLOPURINOL
     Indication: HYPERURICAEMIA
     Dosage: 100 MILLIGRAM, DAILY
     Route: 048
     Dates: start: 201907, end: 201908

REACTIONS (7)
  - Thrombocytopenia [Not Recovered/Not Resolved]
  - Pyrexia [Recovering/Resolving]
  - Pruritus [Recovering/Resolving]
  - Hepatocellular injury [Not Recovered/Not Resolved]
  - Eosinophilia [Recovering/Resolving]
  - Rash maculo-papular [Recovering/Resolving]
  - Mucosal inflammation [Recovering/Resolving]

NARRATIVE: CASE EVENT DATE: 201908
